FAERS Safety Report 8334425-9 (Version None)
Quarter: 2012Q2

REPORT INFORMATION
  Report Type: 
  Country: None (occurrence: None)
  Receive Date: 20120503
  Receipt Date: 20110824
  Transmission Date: 20120825
  Serious: No
  Sender: FDA-Public Use
  Company Number: US-BAUSCH-2011BL005648

PATIENT
  Age: 77 Year
  Sex: Female

DRUGS (8)
  1. GLUCOPHAGE [Concomitant]
  2. TIMOLOL MALEATE [Concomitant]
     Dates: start: 20110801
  3. COMBIGAN [Concomitant]
  4. LISINOPRIL [Concomitant]
  5. LOTEMAX [Suspect]
     Indication: OCULAR HYPERAEMIA
     Route: 047
     Dates: start: 20110713, end: 20110819
  6. SYNTHROID [Concomitant]
  7. ZOCOR [Concomitant]
  8. XALATAN [Concomitant]

REACTIONS (3)
  - PRURITUS [None]
  - PRURITUS GENERALISED [None]
  - RASH [None]
